FAERS Safety Report 20908498 (Version 1)
Quarter: 2022Q2

REPORT INFORMATION
  Report Type: Spontaneous
  Country: TR (occurrence: TR)
  Receive Date: 20220603
  Receipt Date: 20220603
  Transmission Date: 20220721
  Serious: Yes (Other)
  Sender: FDA-Public Use
  Company Number: TR-NOVARTISPH-NVSC2022TR123442

PATIENT
  Sex: Female

DRUGS (2)
  1. DESFERAL [Suspect]
     Active Substance: DEFEROXAMINE MESYLATE
     Indication: Anaemia
     Dosage: UNK (STOPPED FOR 5-6 MONTHS)
     Route: 065
     Dates: start: 2021
  2. DESFERAL [Suspect]
     Active Substance: DEFEROXAMINE MESYLATE
     Indication: Blood iron increased

REACTIONS (4)
  - Loss of consciousness [Unknown]
  - Syncope [Unknown]
  - Product availability issue [Unknown]
  - Therapeutic response unexpected [Unknown]
